FAERS Safety Report 6223376-1 (Version None)
Quarter: 2009Q2

REPORT INFORMATION
  Report Type: 
  Country: None (occurrence: None)
  Receive Date: 20090611
  Receipt Date: 20090529
  Transmission Date: 20091009
  Serious: Yes (Hospitalization)
  Sender: FDA-Public Use
  Company Number: US-ELI_LILLY_AND_COMPANY-US200905005996

PATIENT
  Sex: Male

DRUGS (2)
  1. FORTEO [Suspect]
     Dates: end: 20090524
  2. LORTAB [Concomitant]

REACTIONS (3)
  - BLADDER DISORDER [None]
  - FALL [None]
  - MUSCULAR WEAKNESS [None]
